FAERS Safety Report 11208994 (Version 2)
Quarter: 2015Q2

REPORT INFORMATION
  Report Type: Spontaneous
  Country: US (occurrence: US)
  Receive Date: 20150622
  Receipt Date: 20150626
  Transmission Date: 20150821
  Serious: Yes (Other)
  Sender: FDA-Public Use
  Company Number: US-PFIZER INC-2015205873

PATIENT
  Age: 58 Year
  Sex: Female
  Weight: 109 kg

DRUGS (1)
  1. NEURONTIN [Suspect]
     Active Substance: GABAPENTIN
     Indication: FIBROMYALGIA
     Dosage: UNK, 2X/DAY

REACTIONS (9)
  - Dyskinesia [Unknown]
  - Feeling abnormal [Unknown]
  - Hypersomnia [Unknown]
  - Drug ineffective for unapproved indication [Unknown]
  - Suicidal ideation [Recovered/Resolved]
  - Anxiety [Recovered/Resolved]
  - Malaise [Unknown]
  - Depression [Unknown]
  - Aggression [Recovered/Resolved]

NARRATIVE: CASE EVENT DATE: 201505
